FAERS Safety Report 13901808 (Version 1)
Quarter: 2017Q3

REPORT INFORMATION
  Report Type: Spontaneous
  Country: US (occurrence: US)
  Receive Date: 20170824
  Receipt Date: 20170824
  Transmission Date: 20171127
  Serious: No
  Sender: FDA-Public Use
  Company Number: US-ROCHE-1039440

PATIENT
  Sex: Female

DRUGS (6)
  1. TAXOL [Concomitant]
     Active Substance: PACLITAXEL
  2. FLEXERIL [Concomitant]
     Active Substance: CYCLOBENZAPRINE HYDROCHLORIDE
  3. BLOOD PRESSURE MEDICATION NOS [Concomitant]
     Active Substance: UNSPECIFIED INGREDIENT
  4. STEROIDS NOS [Concomitant]
     Active Substance: UNSPECIFIED INGREDIENT
  5. HERCEPTIN [Suspect]
     Active Substance: TRASTUZUMAB
     Indication: PRODUCT USED FOR UNKNOWN INDICATION
     Route: 065
  6. BENADRYL [Concomitant]
     Active Substance: DIPHENHYDRAMINE HYDROCHLORIDE

REACTIONS (29)
  - Nightmare [Unknown]
  - Chest pain [Unknown]
  - Diarrhoea [Unknown]
  - Weight increased [Unknown]
  - Rhinorrhoea [Unknown]
  - Epistaxis [Unknown]
  - Pain [Unknown]
  - Alopecia [Unknown]
  - Dysuria [Unknown]
  - Feeling jittery [Unknown]
  - Balance disorder [Unknown]
  - Nausea [Unknown]
  - Feeling abnormal [Unknown]
  - Oedema peripheral [Unknown]
  - Skin ulcer [Unknown]
  - Spinal disorder [Unknown]
  - Sneezing [Unknown]
  - Neuropathy peripheral [Unknown]
  - Urinary tract infection [Unknown]
  - Dry mouth [Unknown]
  - Facial paralysis [Unknown]
  - Haematochezia [Unknown]
  - Logorrhoea [Unknown]
  - Hyperphagia [Unknown]
  - Insomnia [Unknown]
  - Cough [Unknown]
  - Drooling [Unknown]
  - Constipation [Unknown]
  - Psychomotor hyperactivity [Unknown]
